FAERS Safety Report 11263824 (Version 1)
Quarter: 2015Q3

REPORT INFORMATION
  Report Type: Spontaneous
  Country: US (occurrence: None)
  Receive Date: 20150709
  Receipt Date: 20150709
  Transmission Date: 20151125
  Serious: Yes (Disabling, Other)
  Sender: FDA-Public Use
  Company Number: 2015-11684

PATIENT
  Age: 92 Year
  Sex: Female
  Weight: 68.5 kg

DRUGS (1)
  1. EYLEA [Suspect]
     Active Substance: AFLIBERCEPT
     Indication: NEOVASCULAR AGE-RELATED MACULAR DEGENERATION
     Route: 031
     Dates: start: 201506

REACTIONS (3)
  - Vision blurred [None]
  - Blindness [None]
  - Eye pain [None]

NARRATIVE: CASE EVENT DATE: 201506
